FAERS Safety Report 6857156-0 (Version None)
Quarter: 2010Q3

REPORT INFORMATION
  Report Type: 
  Country: None (occurrence: None)
  Receive Date: 20100719
  Receipt Date: 20091130
  Transmission Date: 20110219
  Serious: No
  Sender: FDA-Public Use
  Company Number: US-KINGPHARMUSA00001-K200901507

PATIENT
  Age: 65 Year
  Sex: Female
  Weight: 46.712 kg

DRUGS (1)
  1. LEVOXYL [Suspect]
     Indication: HYPOTHYROIDISM
     Dosage: 75 MCG, SIX DAYS PER WEEK
     Route: 048
     Dates: start: 20050101, end: 20091124

REACTIONS (9)
  - BASEDOW'S DISEASE [None]
  - DIPLOPIA [None]
  - EXOPHTHALMOS [None]
  - EYE PAIN [None]
  - HALO VISION [None]
  - THYROID FUNCTION TEST ABNORMAL [None]
  - VISION BLURRED [None]
  - VISUAL IMPAIRMENT [None]
  - WEIGHT DECREASED [None]
